FAERS Safety Report 24971772 (Version 1)
Quarter: 2025Q1

REPORT INFORMATION
  Report Type: Report from Study
  Country: IN (occurrence: IN)
  Receive Date: 20250214
  Receipt Date: 20250214
  Transmission Date: 20250409
  Serious: Yes (Death, Hospitalization, Other)
  Sender: DAIICHI
  Company Number: IN-AstraZeneca-CH-00805397A

PATIENT
  Age: 55 Year
  Sex: Female

DRUGS (1)
  1. ENHERTU [Suspect]
     Active Substance: FAM-TRASTUZUMAB DERUXTECAN-NXKI
     Indication: Human epidermal growth factor receptor positive
     Dosage: 200 MG, ONCE EVERY 3 WK
     Route: 041

REACTIONS (3)
  - Death [Fatal]
  - Oxygen saturation decreased [Unknown]
  - Blood pressure decreased [Unknown]

NARRATIVE: CASE EVENT DATE: 20250209
